FAERS Safety Report 7656993-2 (Version None)
Quarter: 2011Q3

REPORT INFORMATION
  Report Type: 
  Country: None (occurrence: None)
  Receive Date: 20110804
  Receipt Date: 20110727
  Transmission Date: 20111222
  Serious: Yes (Hospitalization)
  Sender: FDA-Public Use
  Company Number: FR-TYCO HEALTHCARE/MALLINCKRODT-T201101471

PATIENT
  Sex: Female

DRUGS (1)
  1. OCTREOSCAN [Suspect]
     Dosage: UNK, SINGLE
     Route: 042
     Dates: start: 20110105, end: 20110105

REACTIONS (5)
  - MEDICATION ERROR [None]
  - ACCIDENTAL EXPOSURE [None]
  - DRUG ADMINISTRATION ERROR [None]
  - RADIATION EXPOSURE [None]
  - WRONG DRUG ADMINISTERED [None]
